FAERS Safety Report 9708026 (Version 1)
Quarter: 2013Q4

REPORT INFORMATION
  Report Type: Spontaneous
  Country: KR (occurrence: None)
  Receive Date: 20131121
  Receipt Date: 20131121
  Transmission Date: 20140711
  Serious: Yes (Death, Hospitalization)
  Sender: FDA-Public Use
  Company Number: IPC201311-000468

PATIENT
  Age: 82 Year
  Sex: Female

DRUGS (9)
  1. METFORMIN HYDROCHLORIDE [Suspect]
     Indication: DIABETES MELLITUS
  2. CIMETIDINE [Suspect]
     Indication: SPINAL COMPRESSION FRACTURE
  3. DEXIBUPROFEN [Suspect]
     Indication: SPINAL COMPRESSION FRACTURE
  4. GLICLAZIDE (GLICLAZIDE) (GLICLAZIDE) [Concomitant]
  5. VOGLIBOSE (VOGLIBOSE) (VOGLIBOSE) [Concomitant]
  6. FENOFIBRATE (FENOFIBRATE) (FENOFIBRATE) [Concomitant]
  7. ATORVASTATIN (ATORVASTATIN) (ATORVASTATIN) [Concomitant]
  8. LORAZEPAM (LORAZEPAM) (LORAZEPAM) [Concomitant]
  9. THIOCTACID (THIOCTACID) (THIOCTACID) [Concomitant]

REACTIONS (14)
  - Lactic acidosis [None]
  - Pancreatitis acute [None]
  - Fall [None]
  - Spinal compression fracture [None]
  - Renal failure acute [None]
  - Altered state of consciousness [None]
  - Sepsis [None]
  - Pneumonia aspiration [None]
  - Skin turgor decreased [None]
  - Blood pressure decreased [None]
  - Heart rate decreased [None]
  - Body temperature decreased [None]
  - Continuous haemodiafiltration [None]
  - Metabolic acidosis [None]
